FAERS Safety Report 4389641-8 (Version None)
Quarter: 2004Q2

REPORT INFORMATION
  Report Type: 
  Country: None (occurrence: None)
  Receive Date: 20040629
  Receipt Date: 20040422
  Transmission Date: 20050107
  Serious: Yes (Hospitalization)
  Sender: FDA-Public Use
  Company Number: US-JNJFOC-20040405418

PATIENT
  Age: 47 Year
  Sex: Female

DRUGS (1)
  1. DURAGESIC [Suspect]
     Indication: PAIN
     Dosage: SEE IMAGE TRANSDERMAL
     Route: 062
     Dates: start: 20020101, end: 20040401

REACTIONS (5)
  - CHEST PAIN [None]
  - CHILLS [None]
  - MEDICATION ERROR [None]
  - SOMNOLENCE [None]
  - THERAPEUTIC RESPONSE DECREASED [None]
